FAERS Safety Report 10435122 (Version 2)
Quarter: 2014Q3

REPORT INFORMATION
  Report Type: Spontaneous
  Country: IT (occurrence: None)
  Receive Date: 20140627
  Receipt Date: 20140708
  Transmission Date: 20150326
  Serious: Yes (Hospitalization)
  Sender: FDA-Public Use
  Company Number: AUR-APL-2014-06210

PATIENT
  Age: 83 Year
  Sex: Female

DRUGS (2)
  1. LEVOFLOXACIN 500MG (LEVOFLOXACIN) UNKNOWN, 500MG [Suspect]
     Active Substance: LEVOFLOXACIN
     Indication: BRONCHITIS
     Dosage: 500 MG, ONCE A DAY, ORAL
     Route: 048
     Dates: start: 20140512, end: 20140518
  2. MEDROL  (METHYPREDNISOLONE) TABLET [Concomitant]

REACTIONS (2)
  - Epilepsy [None]
  - Blood creatinine increased [None]

NARRATIVE: CASE EVENT DATE: 20140518
